FAERS Safety Report 10227080 (Version 3)
Quarter: 2014Q4

REPORT INFORMATION
  Report Type: Spontaneous
  Country: US (occurrence: None)
  Receive Date: 20140606
  Receipt Date: 20141103
  Transmission Date: 20150528
  Serious: Yes (Death, Hospitalization)
  Sender: FDA-Public Use
  Company Number: UNT-2014-001294

PATIENT
  Age: 86 Year
  Sex: Female
  Weight: 43.5 kg

DRUGS (8)
  1. TYVASO [Suspect]
     Active Substance: TREPROSTINIL
     Indication: PULMONARY HYPERTENSION
     Route: 055
     Dates: start: 20120529, end: 20140529
  2. OXYGEN (OXYGEN) [Concomitant]
     Active Substance: OXYGEN
  3. TYVASO [Suspect]
     Active Substance: TREPROSTINIL
     Indication: COR PULMONALE CHRONIC
     Route: 055
     Dates: start: 20120529, end: 20140529
  4. SILDENAFIL (SILDENAFIL) [Concomitant]
     Active Substance: SILDENAFIL
  5. REMODULIN [Suspect]
     Active Substance: TREPROSTINIL
     Indication: PORTAL HYPERTENSION
     Dates: start: 201405
  6. TYVASO [Suspect]
     Active Substance: TREPROSTINIL
     Indication: PORTAL HYPERTENSION
     Route: 055
     Dates: start: 20120529, end: 20140529
  7. REVATIO [Concomitant]
     Active Substance: SILDENAFIL CITRATE
  8. REMODULIN [Suspect]
     Active Substance: TREPROSTINIL
     Indication: PULMONARY ARTERIAL HYPERTENSION
     Dates: start: 201405

REACTIONS (12)
  - Syncope [None]
  - Fall [None]
  - Presyncope [None]
  - Head injury [None]
  - Drug effect decreased [None]
  - Spinal compression fracture [None]
  - Drug ineffective [None]
  - Pain [None]
  - Compression fracture [None]
  - Drug intolerance [None]
  - Cough [None]
  - Therapy cessation [None]
